FAERS Safety Report 25914301 (Version 2)
Quarter: 2025Q4

REPORT INFORMATION
  Report Type: Spontaneous
  Country: US (occurrence: US)
  Receive Date: 20251013
  Receipt Date: 20251124
  Transmission Date: 20260118
  Serious: No
  Sender: GILEAD
  Company Number: US-GILEAD-2025-0732284

PATIENT
  Sex: Male

DRUGS (2)
  1. YEZTUGO [Suspect]
     Active Substance: LENACAPAVIR SODIUM
     Indication: Product used for unknown indication
     Dosage: UNK, TABLETS
     Route: 065
  2. YEZTUGO [Suspect]
     Active Substance: LENACAPAVIR SODIUM
     Indication: Product used for unknown indication
     Dosage: UNK, 2 INJECTIONS IN THE ABDOMEN
     Route: 065
     Dates: start: 20251010, end: 20251010

REACTIONS (1)
  - Injection site discharge [Unknown]

NARRATIVE: CASE EVENT DATE: 20251010
